FAERS Safety Report 9445035 (Version 1)
Quarter: 2013Q3

REPORT INFORMATION
  Report Type: Spontaneous
  Country: DE (occurrence: None)
  Receive Date: 20130731
  Receipt Date: 20130731
  Transmission Date: 20140515
  Serious: Yes (Other)
  Sender: FDA-Public Use
  Company Number: 2013037066

PATIENT
  Age: 40 Year
  Sex: Female

DRUGS (1)
  1. IMMUNOGLOBULINS [Suspect]
     Indication: EPSTEIN-BARR VIRUS INFECTION

REACTIONS (3)
  - Drug ineffective [None]
  - Viral myocarditis [None]
  - Epstein-Barr virus infection [None]
